FAERS Safety Report 24538026 (Version 1)
Quarter: 2024Q4

REPORT INFORMATION
  Report Type: Other
  Country: CN (occurrence: CN)
  Receive Date: 20241023
  Receipt Date: 20241023
  Transmission Date: 20250114
  Serious: Yes (Hospitalization, Other)
  Sender: ANI
  Company Number: CN-ANIPHARMA-012541

PATIENT
  Age: 66 Year
  Sex: Male

DRUGS (11)
  1. AMINOPHYLLINE [Suspect]
     Active Substance: AMINOPHYLLINE
     Indication: Bronchitis chronic
     Route: 048
  2. ACETAMINOPHEN [Concomitant]
     Active Substance: ACETAMINOPHEN
     Indication: Bronchitis chronic
     Route: 048
  3. AMANTADINE [Concomitant]
     Active Substance: AMANTADINE
     Indication: Bronchitis chronic
     Route: 048
  4. CAFFEINE [Concomitant]
     Active Substance: CAFFEINE
     Indication: Bronchitis chronic
  5. CHLORPHENIRAMINE MALEATE [Concomitant]
     Active Substance: CHLORPHENIRAMINE MALEATE
     Indication: Bronchitis chronic
  6. Bezoar [Concomitant]
     Indication: Bronchitis chronic
  7. MIDAZOLAM [Concomitant]
     Active Substance: MIDAZOLAM
     Indication: Product used for unknown indication
  8. HALOPERIDOL [Concomitant]
     Active Substance: HALOPERIDOL
     Indication: Product used for unknown indication
  9. PIPERACILLIN [Concomitant]
     Active Substance: PIPERACILLIN
     Indication: Product used for unknown indication
  10. TAZOBACTAM [Concomitant]
     Active Substance: TAZOBACTAM
     Indication: Product used for unknown indication
  11. AMINOPHYLLINE [Suspect]
     Active Substance: AMINOPHYLLINE
     Indication: Bronchitis chronic
     Route: 048

REACTIONS (2)
  - Intentional product misuse [Unknown]
  - Seizure [Recovered/Resolved]
